FAERS Safety Report 8248253-6 (Version None)
Quarter: 2012Q1

REPORT INFORMATION
  Report Type: 
  Country: None (occurrence: None)
  Receive Date: 20120330
  Receipt Date: 20120323
  Transmission Date: 20120608
  Serious: Yes (Hospitalization)
  Sender: FDA-Public Use
  Company Number: FR-FRI-1000029434

PATIENT
  Age: 60 Year
  Sex: Male

DRUGS (7)
  1. LOSARTAN POTASSIUM AND HYDROCHLOROTHIAZIDE [Suspect]
     Dosage: 100 MG/15.5 MG, 1 DF
     Route: 048
  2. CRESTOR [Suspect]
     Dosage: 10 MG
     Route: 048
  3. PANTOPRAZOLE [Suspect]
     Dosage: 20 MG
     Route: 048
  4. ASPIRIN [Suspect]
     Dosage: 160 MG
     Route: 048
  5. POTASSIUM CHLORIDE [Suspect]
     Route: 048
  6. ACAMPROSATE [Suspect]
     Dosage: 1998 MG
     Route: 048
  7. ERGOCALCIFEROL [Suspect]
     Dosage: 25 DROPS

REACTIONS (2)
  - PANCREATITIS ACUTE [None]
  - OEDEMATOUS PANCREATITIS [None]
